FAERS Safety Report 14119106 (Version 3)
Quarter: 2018Q2

REPORT INFORMATION
  Report Type: Report from Study
  Country: BR (occurrence: BR)
  Receive Date: 20171024
  Receipt Date: 20180410
  Transmission Date: 20180711
  Serious: Yes (Other)
  Sender: FDA-Public Use
  Company Number: BR-ALEXION-A201708145

PATIENT
  Sex: Female

DRUGS (3)
  1. SOLIRIS [Suspect]
     Active Substance: ECULIZUMAB
     Indication: PAROXYSMAL NOCTURNAL HAEMOGLOBINURIA
     Dosage: 600 MG EVERY 7 DAYS
     Route: 042
     Dates: start: 20150930, end: 20151021
  2. SOLIRIS [Suspect]
     Active Substance: ECULIZUMAB
     Dosage: 900 MG EVERY 14 DAYS
     Route: 042
     Dates: start: 20151028, end: 20170905
  3. REVOLADE [Concomitant]
     Active Substance: ELTROMBOPAG
     Indication: APLASIA
     Dosage: 50 MG, UNK
     Route: 065

REACTIONS (20)
  - White blood cells urine positive [Unknown]
  - Blood creatinine increased [Unknown]
  - Haematocrit decreased [Unknown]
  - Hypoaesthesia [Not Recovered/Not Resolved]
  - Fatigue [Not Recovered/Not Resolved]
  - Anxiety [Unknown]
  - Haemoglobin decreased [Unknown]
  - Immunodeficiency [Not Recovered/Not Resolved]
  - Pain [Not Recovered/Not Resolved]
  - Ocular icterus [Not Recovered/Not Resolved]
  - Dizziness [Recovered/Resolved]
  - Creatinine renal clearance decreased [Unknown]
  - Fibrin D dimer increased [Unknown]
  - Palpitations [Not Recovered/Not Resolved]
  - Anaemia [Unknown]
  - Blood urea increased [Unknown]
  - White blood cell count decreased [Unknown]
  - Malaise [Unknown]
  - Asthenia [Unknown]
  - Thrombocytopenia [Unknown]
